FAERS Safety Report 22395056 (Version 1)
Quarter: 2023Q2

REPORT INFORMATION
  Report Type: Spontaneous
  Country: BR (occurrence: BR)
  Receive Date: 20230601
  Receipt Date: 20230601
  Transmission Date: 20230721
  Serious: Yes (Other)
  Sender: FDA-Public Use
  Company Number: BR-JNJFOC-20230561173

PATIENT
  Sex: Male

DRUGS (1)
  1. PRUCALOPRIDE SUCCINATE [Suspect]
     Active Substance: PRUCALOPRIDE SUCCINATE
     Indication: Intestinal obstruction
     Dosage: UNK
     Route: 048

REACTIONS (2)
  - Intestinal obstruction [Unknown]
  - Off label use [Unknown]
